FAERS Safety Report 15086194 (Version 1)
Quarter: 2018Q2

REPORT INFORMATION
  Report Type: Report from Study
  Country: US (occurrence: US)
  Receive Date: 20180628
  Receipt Date: 20180628
  Transmission Date: 20180711
  Serious: No
  Sender: FDA-Public Use
  Company Number: US-AMGEN-USASL2017059302

PATIENT
  Age: 71 Year
  Sex: Female

DRUGS (8)
  1. PROLIA [Suspect]
     Active Substance: DENOSUMAB
     Indication: OSTEOPOROSIS
  2. PROLIA [Suspect]
     Active Substance: DENOSUMAB
     Indication: FRACTURED SACRUM
  3. PROLIA [Suspect]
     Active Substance: DENOSUMAB
     Indication: OSTEOPOROSIS
     Dosage: 60 MG, Q6MO
     Route: 058
  4. PROLIA [Suspect]
     Active Substance: DENOSUMAB
     Indication: FATIGUE
  5. PROLIA [Suspect]
     Active Substance: DENOSUMAB
     Indication: OEDEMA
  6. PROLIA [Suspect]
     Active Substance: DENOSUMAB
     Indication: PUBIS FRACTURE
  7. PROLIA [Suspect]
     Active Substance: DENOSUMAB
     Indication: INJURY
  8. VITAMIN D [Concomitant]
     Active Substance: CHOLECALCIFEROL
     Dosage: UNK

REACTIONS (1)
  - Off label use [Unknown]
